FAERS Safety Report 6425970-1 (Version None)
Quarter: 2009Q4

REPORT INFORMATION
  Report Type: 
  Country: None (occurrence: None)
  Receive Date: 20091103
  Receipt Date: 20091103
  Transmission Date: 20100525
  Serious: No
  Sender: FDA-Public Use
  Company Number: None

PATIENT
  Age: 49 Year

DRUGS (1)
  1. SIMAVASTATIN [Suspect]
     Indication: HYPERLIPIDAEMIA
     Dosage: 60 MG EVERY DAY PO
     Route: 048
     Dates: start: 20080701

REACTIONS (4)
  - BALANCE DISORDER [None]
  - FALL [None]
  - RENAL FAILURE ACUTE [None]
  - RHABDOMYOLYSIS [None]
